FAERS Safety Report 5222561-5 (Version None)
Quarter: 2007Q1

REPORT INFORMATION
  Report Type: 
  Country: None (occurrence: None)
  Receive Date: 20070129
  Receipt Date: 20070118
  Transmission Date: 20070707
  Serious: Yes (Other)
  Sender: FDA-Public Use
  Company Number: FR-ELI_LILLY_AND_COMPANY-FR200701004097

PATIENT
  Sex: Female

DRUGS (2)
  1. EVISTA [Suspect]
     Dosage: UNK, UNK
     Route: 048
  2. HERBAL PREPARATION [Concomitant]
     Indication: URINARY TRACT INFECTION

REACTIONS (1)
  - TRANSAMINASES INCREASED [None]
